FAERS Safety Report 5942312-6 (Version None)
Quarter: 2008Q4

REPORT INFORMATION
  Report Type: 
  Country: None (occurrence: None)
  Receive Date: 20081105
  Receipt Date: 20081024
  Transmission Date: 20090506
  Serious: Yes (Death, Other)
  Sender: FDA-Public Use
  Company Number: IT-TYCO HEALTHCARE/MALLINCKRODT-T200801751

PATIENT

DRUGS (3)
  1. SODIUM IODIDE I 131 [Suspect]
     Indication: RADIOACTIVE IODINE THERAPY
     Dosage: 95 MCI, UNK
     Dates: start: 19860101
  2. SODIUM IODIDE I 131 [Suspect]
     Dosage: 100 MCI
     Dates: start: 19860701
  3. SODIUM IODIDE I 131 [Suspect]
     Dosage: 100 MCI, UNK
     Dates: start: 19870101

REACTIONS (3)
  - ACUTE LYMPHOCYTIC LEUKAEMIA [None]
  - CYTOGENETIC ABNORMALITY [None]
  - GRAFT VERSUS HOST DISEASE [None]
